FAERS Safety Report 11856315 (Version 2)
Quarter: 2015Q4

REPORT INFORMATION
  Report Type: Spontaneous
  Country: US (occurrence: US)
  Receive Date: 20151221
  Receipt Date: 20151223
  Transmission Date: 20160305
  Serious: No
  Sender: FDA-Public Use
  Company Number: US-BAXTER-2015BAX068345

PATIENT
  Age: 53 Year
  Sex: Male
  Weight: 156 kg

DRUGS (1)
  1. DIANEAL LOW CALCIUM PERITONEAL DIALYSIS SOLUTION WITH DEXTROSE [Suspect]
     Active Substance: CALCIUM CHLORIDE\DEXTROSE\MAGNESIUM CHLORIDE\SODIUM CHLORIDE\SODIUM LACTATE
     Indication: PERITONEAL DIALYSIS
     Route: 033

REACTIONS (4)
  - Peripheral swelling [Unknown]
  - Drug dispensing error [Unknown]
  - Fluid overload [Unknown]
  - Ultrafiltration failure [Unknown]

NARRATIVE: CASE EVENT DATE: 20151210
